FAERS Safety Report 8095331-0 (Version None)
Quarter: 2012Q1

REPORT INFORMATION
  Report Type: 
  Country: None (occurrence: None)
  Receive Date: 20120129
  Receipt Date: 20111220
  Transmission Date: 20120608
  Serious: No
  Sender: FDA-Public Use
  Company Number: US-ABBOTT-11P-163-0884885-00

PATIENT
  Sex: Female
  Weight: 74.91 kg

DRUGS (7)
  1. HYDROCHLOROTHIAZIDE [Concomitant]
     Indication: HYPERTENSION
  2. FOSAMAX [Concomitant]
     Indication: OSTEOPOROSIS
  3. HUMIRA [Suspect]
     Indication: RHEUMATOID ARTHRITIS
     Dates: start: 20100101
  4. UNKNOWN MEDICATION [Concomitant]
     Indication: HYPERTENSION
  5. NADOLOL [Concomitant]
     Indication: HYPERTENSION
  6. METHOTREXATE [Concomitant]
     Indication: RHEUMATOID ARTHRITIS
  7. SOMA [Concomitant]
     Indication: RHEUMATOID ARTHRITIS

REACTIONS (1)
  - INJECTION SITE PAIN [None]
